FAERS Safety Report 15314083 (Version 1)
Quarter: 2018Q3

REPORT INFORMATION
  Report Type: Spontaneous
  Country: US (occurrence: US)
  Receive Date: 20180824
  Receipt Date: 20180824
  Transmission Date: 20181010
  Serious: No
  Sender: FDA-Public Use
  Company Number: US-TEVA-2018-US-946387

PATIENT
  Sex: Female

DRUGS (1)
  1. ATOMOXETINE. [Suspect]
     Active Substance: ATOMOXETINE HYDROCHLORIDE
     Indication: ATTENTION DEFICIT/HYPERACTIVITY DISORDER
     Dosage: 100 MILLIGRAM DAILY; 7 DAYS
     Route: 065

REACTIONS (5)
  - Product taste abnormal [Unknown]
  - Depression [Unknown]
  - Abdominal distension [Unknown]
  - Product physical issue [Unknown]
  - Nausea [Unknown]
